FAERS Safety Report 4780202-5 (Version None)
Quarter: 2005Q3

REPORT INFORMATION
  Report Type: 
  Country: None (occurrence: None)
  Receive Date: 20050914
  Receipt Date: 20050712
  Transmission Date: 20060218
  Serious: Yes (Hospitalization)
  Sender: FDA-Public Use
  Company Number: 163-20785-05070221 (0)

PATIENT
  Age: 74 Year
  Sex: Female
  Weight: 87.2 kg

DRUGS (2)
  1. THALOMID [Suspect]
     Indication: SARCOMA
     Dosage: 200-400MG DAILY, SSEE IMAGEARTING 2 WEEKS POST-UP X 6 MONTHS, ORAL
     Route: 048
     Dates: start: 20050321, end: 20050702
  2. RADIATION (UNKNOWN) [Suspect]
     Indication: SARCOMA
     Dates: start: 20050101

REACTIONS (1)
  - INFECTION [None]
